FAERS Safety Report 8092484-5 (Version None)
Quarter: 2012Q1

REPORT INFORMATION
  Report Type: 
  Country: None (occurrence: None)
  Receive Date: 20120128
  Receipt Date: 20110728
  Transmission Date: 20120608
  Serious: No
  Sender: FDA-Public Use
  Company Number: US-ABBOTT-11P-163-0842653-00

PATIENT
  Age: 53 Year
  Sex: Female

DRUGS (4)
  1. CHOLESTEROL MEDICATION [Concomitant]
     Indication: BLOOD CHOLESTEROL
     Route: 048
  2. ICE [Concomitant]
     Indication: MIGRAINE
     Dosage: PACKS HEAD AND NECK W/ICE
  3. MIGRAINE MEDICATION [Concomitant]
     Indication: MIGRAINE
  4. HUMIRA [Suspect]
     Indication: PSORIASIS
     Dates: start: 20110301

REACTIONS (10)
  - RASH [None]
  - PRURITUS [None]
  - RASH MACULAR [None]
  - PAIN IN EXTREMITY [None]
  - CONTUSION [None]
  - RASH MACULO-PAPULAR [None]
  - SKIN EXFOLIATION [None]
  - OEDEMA PERIPHERAL [None]
  - ARTHRALGIA [None]
  - FALL [None]
